FAERS Safety Report 18785499 (Version 1)
Quarter: 2021Q1

REPORT INFORMATION
  Report Type: Spontaneous
  Country: US (occurrence: US)
  Receive Date: 20210125
  Receipt Date: 20210125
  Transmission Date: 20210419
  Serious: No
  Sender: FDA-Public Use
  Company Number: US-ROCHE-2564363

PATIENT
  Sex: Male

DRUGS (5)
  1. RITUXAN [Suspect]
     Active Substance: RITUXIMAB
     Indication: EXTRANODAL MARGINAL ZONE B-CELL LYMPHOMA (MALT TYPE)
     Dosage: INFUSE 750 MG INTRAVENOUSLY OVER 4 HOURS ON DAY 1 EVERY 28 DAYS
     Route: 042
  2. AMLODIPINE BESYLATE. [Concomitant]
     Active Substance: AMLODIPINE BESYLATE
  3. ONDANSETRON [Concomitant]
     Active Substance: ONDANSETRON
  4. SIMVASTATINE [Concomitant]
     Active Substance: SIMVASTATIN
  5. EMEND [Concomitant]
     Active Substance: APREPITANT

REACTIONS (4)
  - Dyspnoea [Unknown]
  - Paraesthesia [Unknown]
  - Flushing [Unknown]
  - Hyperhidrosis [Unknown]
